FAERS Safety Report 6571278-3 (Version None)
Quarter: 2010Q1

REPORT INFORMATION
  Report Type: 
  Country: None (occurrence: None)
  Receive Date: 20100129
  Receipt Date: 20100122
  Transmission Date: 20100710
  Serious: Yes (Other)
  Sender: FDA-Public Use
  Company Number: 2010SP004800

PATIENT
  Age: 60 Year
  Sex: Male

DRUGS (7)
  1. RIBAVIRIN [Suspect]
     Indication: HEPATITIS C
     Dosage: 1000 MG;QD;PO;;600 MG;QD;PO
     Route: 048
     Dates: start: 20091124, end: 20091221
  2. RIBAVIRIN [Suspect]
     Indication: HEPATITIS C
     Dosage: 1000 MG;QD;PO;;600 MG;QD;PO
     Route: 048
     Dates: start: 20091222
  3. PEG-INTRON [Suspect]
     Indication: HEPATITIS C
     Dosage: 135 MCG; QW; SC
     Route: 058
     Dates: start: 20091124
  4. ELTROMBOPAG (ELTROMBOPAG) [Suspect]
     Indication: THROMBOCYTOPENIA
     Dosage: 25 MG; QD; PO, 50 MG;QD; PO
     Route: 048
     Dates: start: 20091027, end: 20091109
  5. ELTROMBOPAG (ELTROMBOPAG) [Suspect]
     Indication: THROMBOCYTOPENIA
     Dosage: 25 MG; QD; PO, 50 MG;QD; PO
     Route: 048
     Dates: start: 20091110, end: 20091123
  6. BLINDED ELTROMBOPAG (ELTROMBOPAG) [Suspect]
     Indication: THROMBOCYTOPENIA
     Dosage: QD; PO, 100 MG; QD; PO
     Route: 048
     Dates: start: 20091124, end: 20091207
  7. BLINDED ELTROMBOPAG (ELTROMBOPAG) [Suspect]
     Indication: THROMBOCYTOPENIA
     Dosage: QD; PO, 100 MG; QD; PO
     Route: 048
     Dates: start: 20091208

REACTIONS (6)
  - ALANINE AMINOTRANSFERASE INCREASED [None]
  - ASPARTATE AMINOTRANSFERASE INCREASED [None]
  - BLOOD ALBUMIN DECREASED [None]
  - BLOOD BILIRUBIN INCREASED [None]
  - GAMMA-GLUTAMYLTRANSFERASE INCREASED [None]
  - PRURITUS [None]
